FAERS Safety Report 19427230 (Version 1)
Quarter: 2021Q2

REPORT INFORMATION
  Report Type: Spontaneous
  Country: JP (occurrence: JP)
  Receive Date: 20210617
  Receipt Date: 20210617
  Transmission Date: 20210717
  Serious: Yes (Death, Hospitalization, Other)
  Sender: FDA-Public Use
  Company Number: PHHY2015JP128508

PATIENT
  Age: 63 Year
  Sex: Female
  Weight: 45 kg

DRUGS (7)
  1. VOTRIENT [Suspect]
     Active Substance: PAZOPANIB HYDROCHLORIDE
     Indication: UNDIFFERENTIATED SARCOMA
     Dosage: 800 MG, QD
     Route: 048
     Dates: start: 20131028
  2. ASTOMIN [Concomitant]
     Indication: ANTITUSSIVE THERAPY
     Dosage: 20 MG, TID
     Route: 065
     Dates: start: 20130829, end: 20140307
  3. BISOLVON [Concomitant]
     Active Substance: BROMHEXINE HYDROCHLORIDE
     Indication: PRODUCTIVE COUGH
     Dosage: 4 MG, TID
     Route: 065
     Dates: start: 20130912, end: 20140307
  4. TRAVELMIN [Concomitant]
     Indication: VOMITING
     Dosage: 1 DF, TID
     Route: 065
     Dates: start: 20131010, end: 20140307
  5. MUCOSTA [Concomitant]
     Active Substance: REBAMIPIDE
     Indication: GASTRIC MUCOSAL LESION
     Dosage: 100 MG, TID
     Route: 065
     Dates: start: 20131010, end: 20140307
  6. GASTER [Concomitant]
     Active Substance: FAMOTIDINE
     Indication: GASTRIC MUCOSAL LESION
     Dosage: 10 MG, BID
     Route: 065
     Dates: start: 20131023, end: 20140307
  7. MALFA [Concomitant]
     Active Substance: ALUMINUM HYDROXIDE\MAGNESIUM HYDROXIDE
     Indication: GASTRIC MUCOSAL LESION
     Dosage: 10 ML, TID
     Route: 065
     Dates: start: 20131101, end: 20140307

REACTIONS (12)
  - General physical health deterioration [Unknown]
  - Hypertension [Recovering/Resolving]
  - Thyroiditis [Unknown]
  - Drug-induced liver injury [Recovering/Resolving]
  - Respiratory failure [Fatal]
  - Thyroid disorder [Not Recovered/Not Resolved]
  - Hepatic function abnormal [Recovering/Resolving]
  - Pleural effusion [Fatal]
  - Thyroid function test abnormal [Unknown]
  - Liver function test abnormal [Unknown]
  - Metastases to lung [Fatal]
  - Hypothyroidism [Not Recovered/Not Resolved]

NARRATIVE: CASE EVENT DATE: 20131105
